FAERS Safety Report 9297168 (Version 1)
Quarter: 2013Q2

REPORT INFORMATION
  Report Type: Report from Study
  Country: IT (occurrence: IT)
  Receive Date: 20130520
  Receipt Date: 20130520
  Transmission Date: 20140414
  Serious: Yes (Hospitalization)
  Sender: FDA-Public Use
  Company Number: IT-ROCHE-1223460

PATIENT
  Sex: 0

DRUGS (3)
  1. BEVACIZUMAB [Suspect]
     Indication: COLON CANCER
     Route: 042
     Dates: start: 20130304
  2. FLUOROURACILE [Concomitant]
     Route: 042
     Dates: start: 20130304, end: 20130403
  3. FLUOROURACILE [Concomitant]
     Route: 042
     Dates: start: 20130304, end: 20130403

REACTIONS (3)
  - Enteritis [Recovered/Resolved]
  - Electrolyte imbalance [Recovered/Resolved]
  - Diarrhoea [Recovered/Resolved]
